FAERS Safety Report 9378264 (Version 2)
Quarter: 2013Q3

REPORT INFORMATION
  Report Type: Spontaneous
  Country: US (occurrence: US)
  Receive Date: 20130701
  Receipt Date: 20130816
  Transmission Date: 20140515
  Serious: Yes (Hospitalization)
  Sender: FDA-Public Use
  Company Number: US-UCBSA-089838

PATIENT
  Age: 64 Year
  Sex: Male

DRUGS (6)
  1. VIMPAT [Suspect]
     Indication: CONVULSION
     Dosage: 50 5/DAILY
  2. VIMPAT [Suspect]
     Indication: CONVULSION
     Dosage: 250 MG EVERY MORNING AND 350 MG EVERY NIGHT
  3. KEPPRA [Suspect]
     Indication: CONVULSION
     Dosage: UNKNOWN DOSE
  4. KEPPRA [Suspect]
     Indication: CONVULSION
     Dosage: 750 MG, 2 EVERY MORNING AND 750 MG EVERY NIGHT
  5. PAROXETINE [Concomitant]
     Dosage: 20 MG
  6. TRAZODONE [Concomitant]
     Dosage: DAILY DOSE: 100 MG

REACTIONS (5)
  - Cystitis [Recovering/Resolving]
  - Urinary tract infection [Recovering/Resolving]
  - Colostomy [Recovering/Resolving]
  - Fistula [Recovering/Resolving]
  - Overdose [Unknown]
